FAERS Safety Report 17162969 (Version 1)
Quarter: 2019Q4

REPORT INFORMATION
  Report Type: Spontaneous
  Country: US (occurrence: US)
  Receive Date: 20191216
  Receipt Date: 20191216
  Transmission Date: 20200122
  Serious: Yes (Other)
  Sender: FDA-Public Use
  Company Number: None

PATIENT
  Age: 54 Year
  Sex: Female
  Weight: 83.7 kg

DRUGS (5)
  1. ALBUTEROL. [Concomitant]
     Active Substance: ALBUTEROL
  2. VICODIN [Concomitant]
     Active Substance: ACETAMINOPHEN\HYDROCODONE BITARTRATE
  3. SYNTHROID [Concomitant]
     Active Substance: LEVOTHYROXINE SODIUM
  4. AMBIEN [Concomitant]
     Active Substance: ZOLPIDEM TARTRATE
  5. THYROGEN [Suspect]
     Active Substance: THYROTROPIN ALFA
     Indication: SCAN WITH CONTRAST
     Route: 030
     Dates: start: 20190716, end: 20190718

REACTIONS (2)
  - Tumour pain [None]
  - Neoplasm progression [None]

NARRATIVE: CASE EVENT DATE: 20190718
